FAERS Safety Report 4280590-2 (Version None)
Quarter: 2004Q1

REPORT INFORMATION
  Report Type: 
  Country: None (occurrence: None)
  Receive Date: 20040128
  Receipt Date: 20040121
  Transmission Date: 20041129
  Serious: Yes (Death)
  Sender: FDA-Public Use
  Company Number: 04-01-0107

PATIENT
  Age: 76 Year
  Sex: Male

DRUGS (1)
  1. CLOZAPINE [Suspect]
     Indication: PARKINSON'S DISEASE
     Dosage: 25-100MG QD ORAL
     Route: 048
     Dates: start: 20030301, end: 20031101

REACTIONS (1)
  - UROSEPSIS [None]
